FAERS Safety Report 8118556-4 (Version None)
Quarter: 2012Q1

REPORT INFORMATION
  Report Type: 
  Country: None (occurrence: None)
  Receive Date: 20120202
  Receipt Date: 20120119
  Transmission Date: 20120608
  Serious: Yes (Hospitalization, Other)
  Sender: FDA-Public Use
  Company Number: 2012MA000941

PATIENT
  Sex: Female

DRUGS (5)
  1. ALADACTONE [Concomitant]
  2. LASIX [Concomitant]
  3. COUMADIN [Concomitant]
  4. DIGOXIN [Suspect]
     Dosage: 0.125 MG; PO
     Route: 048
     Dates: start: 20020717, end: 20080207
  5. ENALAPRIL MALEATE [Concomitant]

REACTIONS (8)
  - ENCEPHALOMALACIA [None]
  - CEREBELLAR INFARCTION [None]
  - DYSPNOEA [None]
  - CAROTID ARTERIOSCLEROSIS [None]
  - LYMPHADENOPATHY [None]
  - CARDIAC FAILURE [None]
  - LOCAL SWELLING [None]
  - CARDIOMYOPATHY [None]
